FAERS Safety Report 10223562 (Version 1)
Quarter: 2014Q2

REPORT INFORMATION
  Report Type: Spontaneous
  Country: US (occurrence: US)
  Receive Date: 20140609
  Receipt Date: 20140609
  Transmission Date: 20141212
  Serious: Yes (Other)
  Sender: FDA-Public Use
  Company Number: US-AMGEN-USASP2014042172

PATIENT
  Age: 62 Year
  Sex: Male

DRUGS (6)
  1. ENBREL [Suspect]
     Indication: PSORIASIS
     Dosage: 50 MG, 2 TIMES/WK
     Route: 065
     Dates: start: 20130114, end: 201310
  2. HUMIRA [Suspect]
     Indication: PRODUCT USED FOR UNKNOWN INDICATION
     Dosage: ABOUT 6 MONTHS
     Route: 065
  3. KEPPRA [Concomitant]
     Indication: CEREBROVASCULAR ACCIDENT
  4. KEPPRA [Concomitant]
     Indication: CONVULSION
  5. KEPPRA [Concomitant]
     Indication: DIZZINESS
  6. KEPPRA [Concomitant]
     Indication: HYPOAESTHESIA

REACTIONS (10)
  - Nephrolithiasis [Recovered/Resolved]
  - Cerebrovascular accident [Not Recovered/Not Resolved]
  - Cataract [Recovered/Resolved]
  - Intraocular lens implant [Recovered/Resolved]
  - Convulsion [Not Recovered/Not Resolved]
  - Therapeutic response decreased [Recovered/Resolved]
  - Large intestine polyp [Recovered/Resolved]
  - Hypoaesthesia [Recovering/Resolving]
  - Dizziness [Recovering/Resolving]
  - Psoriasis [Recovered/Resolved]
